FAERS Safety Report 9220515 (Version 3)
Quarter: 2013Q2

REPORT INFORMATION
  Report Type: Spontaneous
  Country: AU (occurrence: AU)
  Receive Date: 20130409
  Receipt Date: 20130612
  Transmission Date: 20140414
  Serious: Yes (Hospitalization, Other)
  Sender: FDA-Public Use
  Company Number: AU-009507513-1304AUS003059

PATIENT
  Age: 78 Year
  Sex: Female

DRUGS (1)
  1. FOSAMAX [Suspect]
     Indication: SPINAL FRACTURE
     Dosage: 1 DF, UNK
     Route: 048

REACTIONS (2)
  - Atypical femur fracture [Unknown]
  - Internal fixation of fracture [Unknown]
